FAERS Safety Report 24581079 (Version 2)
Quarter: 2024Q4

REPORT INFORMATION
  Report Type: Spontaneous
  Country: IN (occurrence: IN)
  Receive Date: 20241105
  Receipt Date: 20241107
  Transmission Date: 20250115
  Serious: Yes (Death)
  Sender: PFIZER
  Company Number: IN-PFIZER INC-PV202400020554

PATIENT
  Age: 36 Year
  Sex: Female

DRUGS (1)
  1. CRIZOTINIB [Suspect]
     Active Substance: CRIZOTINIB
     Indication: Breast cancer metastatic
     Dosage: 250 MG, BD (1-0-1 X 2 MONTHS)
     Route: 048

REACTIONS (2)
  - Death [Fatal]
  - Off label use [Unknown]
